FAERS Safety Report 10205775 (Version 2)
Quarter: 2014Q2

REPORT INFORMATION
  Report Type: Spontaneous
  Country: ZA (occurrence: ZA)
  Receive Date: 20140530
  Receipt Date: 20140530
  Transmission Date: 20141212
  Serious: Yes (Hospitalization)
  Sender: FDA-Public Use
  Company Number: ZA-009507513-1405ZAF006103

PATIENT
  Age: 28 Year
  Sex: Male

DRUGS (3)
  1. ESMERON [Suspect]
     Dosage: 40 MG, UNK
  2. PROPOFOL [Suspect]
     Dosage: UNK
  3. KEFZOL [Suspect]
     Dosage: UNK

REACTIONS (3)
  - Cardiovascular disorder [Recovered/Resolved]
  - Respiratory disorder [Recovered/Resolved]
  - Anaphylactic reaction [Unknown]
